FAERS Safety Report 13447626 (Version 2)
Quarter: 2017Q2

REPORT INFORMATION
  Report Type: Spontaneous
  Country: US (occurrence: US)
  Receive Date: 20170417
  Receipt Date: 20170508
  Transmission Date: 20170830
  Serious: No
  Sender: FDA-Public Use
  Company Number: US-GLAXOSMITHKLINE-US2017054631

PATIENT
  Sex: Female

DRUGS (1)
  1. FLOVENT [Suspect]
     Active Substance: FLUTICASONE PROPIONATE
     Dosage: 2 PUFF(S), UNK

REACTIONS (2)
  - Incorrect dose administered [Unknown]
  - Wrong technique in device usage process [Unknown]
